FAERS Safety Report 6178659-0 (Version None)
Quarter: 2009Q2

REPORT INFORMATION
  Report Type: 
  Country: None (occurrence: None)
  Receive Date: 20090504
  Receipt Date: 20081007
  Transmission Date: 20091009
  Serious: No
  Sender: FDA-Public Use
  Company Number: US-ALEXION-A200800263

PATIENT

DRUGS (4)
  1. SOLIRIS [Suspect]
     Dosage: UNK, UNK
     Route: 042
  2. SOLIRIS [Suspect]
     Dosage: 900 MG, SINGLE
     Route: 042
     Dates: start: 20081008, end: 20081008
  3. EXJADE [Concomitant]
     Dates: start: 20080901
  4. BLOOD AND RELATED PRODUCTS [Concomitant]
     Dates: start: 20080901

REACTIONS (3)
  - HAEMOGLOBIN DECREASED [None]
  - RECTAL HAEMORRHAGE [None]
  - URINE COLOUR ABNORMAL [None]
